FAERS Safety Report 8621979-8 (Version None)
Quarter: 2012Q3

REPORT INFORMATION
  Report Type: 
  Country: None (occurrence: None)
  Receive Date: 20120823
  Receipt Date: 20120823
  Transmission Date: 20120928
  Serious: No
  Sender: FDA-Public Use
  Company Number: None

PATIENT
  Age: 54 Year
  Sex: Female
  Weight: 110.6777 kg

DRUGS (1)
  1. CIPROFLOXACIN [Suspect]
     Indication: BRONCHITIS
     Dosage: 1000MG DAILY PO
     Route: 048
     Dates: start: 20120813, end: 20120820

REACTIONS (2)
  - ORAL DISCOMFORT [None]
  - GLOSSODYNIA [None]
